FAERS Safety Report 21922713 (Version 1)
Quarter: 2023Q1

REPORT INFORMATION
  Report Type: Spontaneous
  Country: CN (occurrence: CN)
  Receive Date: 20230128
  Receipt Date: 20230128
  Transmission Date: 20230418
  Serious: Yes (Other)
  Sender: FDA-Public Use
  Company Number: CN-Accord-297624

PATIENT
  Age: 57 Year
  Sex: Female
  Weight: 60 kg

DRUGS (2)
  1. METHOTREXATE [Suspect]
     Active Substance: METHOTREXATE
     Indication: Diffuse large B-cell lymphoma
     Dosage: 3.2 G/M2 , IV DRIP, DAY 1, ADMINISTERED EVERY 21 DAYS
     Dates: start: 201111
  2. LEUCOVORIN [Concomitant]
     Active Substance: LEUCOVORIN
     Indication: Diffuse large B-cell lymphoma
     Dates: start: 201111

REACTIONS (1)
  - Febrile neutropenia [Recovered/Resolved]

NARRATIVE: CASE EVENT DATE: 20110101
